FAERS Safety Report 20319372 (Version 1)
Quarter: 2022Q1

REPORT INFORMATION
  Report Type: Spontaneous
  Country: US (occurrence: US)
  Receive Date: 20220110
  Receipt Date: 20220110
  Transmission Date: 20220423
  Serious: No
  Sender: FDA-Public Use
  Company Number: US-BIOMARINAP-US-2021-140614

PATIENT
  Age: 24 Year
  Sex: Male

DRUGS (1)
  1. ALDURAZYME [Suspect]
     Active Substance: LARONIDASE
     Indication: Mucopolysaccharidosis I
     Dosage: 29 MILLIGRAM, QW
     Route: 042
     Dates: start: 20030731

REACTIONS (2)
  - Musculoskeletal stiffness [Unknown]
  - Back pain [Unknown]
